FAERS Safety Report 6338557-6 (Version None)
Quarter: 2009Q3

REPORT INFORMATION
  Report Type: 
  Country: None (occurrence: None)
  Receive Date: 20090901
  Receipt Date: 20090819
  Transmission Date: 20100115
  Serious: No
  Sender: FDA-Public Use
  Company Number: 007315

PATIENT
  Age: 86 Year
  Sex: Male

DRUGS (7)
  1. CILOSTAZOL [Suspect]
     Indication: INTERMITTENT CLAUDICATION
     Dosage: 200 MG, DAILY DOSE, ORAL
     Route: 048
     Dates: start: 20090709, end: 20090713
  2. NITRENDIPINE (NITRENDIPINE) [Suspect]
     Dosage: 10 MG, DAILY
     Dates: start: 20090101, end: 20090101
  3. ENALAPRIL MALEATE [Concomitant]
  4. OMEPRAZOLE [Concomitant]
  5. PARACETAMOL (PARACETAMOL) [Concomitant]
  6. TRAMADOL HCL [Concomitant]
  7. ALOPURINOL (ALLOPURINOL) [Concomitant]

REACTIONS (5)
  - DRUG INTERACTION [None]
  - DYSPNOEA [None]
  - OEDEMA PERIPHERAL [None]
  - PALPITATIONS [None]
  - TACHYCARDIA [None]
